FAERS Safety Report 20193378 (Version 2)
Quarter: 2023Q2

REPORT INFORMATION
  Report Type: Report from Study
  Country: BR (occurrence: BR)
  Receive Date: 20211216
  Receipt Date: 20230512
  Transmission Date: 20230721
  Serious: Yes (Other)
  Sender: FDA-Public Use
  Company Number: BR-JNJFOC-20211224169

PATIENT
  Age: 65 Year
  Sex: Female
  Weight: 74 kg

DRUGS (2)
  1. SIMPONI [Suspect]
     Active Substance: GOLIMUMAB
     Indication: Rheumatoid arthritis
     Route: 058
     Dates: start: 20170629
  2. SIMPONI [Suspect]
     Active Substance: GOLIMUMAB

REACTIONS (8)
  - Cardiac arrest [Unknown]
  - Pulmonary embolism [Unknown]
  - Thrombosis [Unknown]
  - Device related infection [Unknown]
  - Fall [Unknown]
  - COVID-19 [Unknown]
  - Nosocomial infection [Unknown]
  - Hypoaesthesia [Unknown]

NARRATIVE: CASE EVENT DATE: 20210401
